FAERS Safety Report 12374809 (Version 2)
Quarter: 2016Q3

REPORT INFORMATION
  Report Type: Spontaneous
  Country: US (occurrence: US)
  Receive Date: 20160517
  Receipt Date: 20160802
  Transmission Date: 20161109
  Serious: No
  Sender: FDA-Public Use
  Company Number: US-PFIZER INC-2016251896

PATIENT
  Age: 50 Year
  Sex: Female

DRUGS (2)
  1. LETROZOLE. [Concomitant]
     Active Substance: LETROZOLE
     Indication: BREAST CANCER FEMALE
     Dosage: UNK
  2. IBRANCE [Suspect]
     Active Substance: PALBOCICLIB
     Indication: BREAST CANCER FEMALE
     Dosage: 125 MG, CYCLIC (EVERY DAY FOR 3 WEEKS THEN 1 WEEK OFF THEN RESTART)
     Route: 048

REACTIONS (6)
  - Disease progression [Unknown]
  - Depression [Unknown]
  - Product use issue [Unknown]
  - Swelling [Unknown]
  - Breast cancer female [Unknown]
  - Weight increased [Unknown]
